FAERS Safety Report 20633316 (Version 2)
Quarter: 2022Q2

REPORT INFORMATION
  Report Type: Spontaneous
  Country: US (occurrence: US)
  Receive Date: 20220324
  Receipt Date: 20220503
  Transmission Date: 20220721
  Serious: Yes (Other)
  Sender: FDA-Public Use
  Company Number: US-AMGEN-USASP2022047574

PATIENT
  Age: 57 Year
  Sex: Female
  Weight: 51.066 kg

DRUGS (1)
  1. REPATHA [Suspect]
     Active Substance: EVOLOCUMAB
     Indication: Product used for unknown indication
     Dosage: 140 MILLIGRAM, Q2WK
     Route: 065
     Dates: start: 20220106

REACTIONS (2)
  - Anal cancer [Unknown]
  - Product storage error [Unknown]

NARRATIVE: CASE EVENT DATE: 20220120
